FAERS Safety Report 5045080-8 (Version None)
Quarter: 2006Q3

REPORT INFORMATION
  Report Type: 
  Country: None (occurrence: None)
  Receive Date: 20060707
  Receipt Date: 20060628
  Transmission Date: 20061208
  Serious: Yes (Other)
  Sender: FDA-Public Use
  Company Number: GB-JNJFOC-20050400081

PATIENT
  Sex: Female

DRUGS (4)
  1. MEBENDAZOLE [Suspect]
     Indication: ENTEROBIASIS
     Route: 048
     Dates: start: 20041206, end: 20041206
  2. VENTOLIN [Concomitant]
     Indication: ASTHMA
     Route: 065
  3. BUDESONIDE [Concomitant]
     Route: 065
  4. POMOTEROL [Concomitant]
     Indication: ASTHMA
     Route: 065

REACTIONS (5)
  - ATRIAL FLUTTER [None]
  - EXTRASYSTOLES [None]
  - HEART RATE IRREGULAR [None]
  - PALPITATIONS [None]
  - TACHYCARDIA [None]
